FAERS Safety Report 17837280 (Version 1)
Quarter: 2020Q2

REPORT INFORMATION
  Report Type: Spontaneous
  Country: FR (occurrence: FR)
  Receive Date: 20200528
  Receipt Date: 20200528
  Transmission Date: 20200714
  Serious: Yes (Other)
  Sender: FDA-Public Use
  Company Number: FR-GLAXOSMITHKLINE-FR2020GSK086806

PATIENT
  Sex: Male
  Weight: 2.03 kg

DRUGS (16)
  1. DOXORUBICIN [Suspect]
     Active Substance: DOXORUBICIN
     Indication: HODGKIN^S DISEASE
     Dosage: 25 MG/M2 (IN 20 ML OF GLUCOSE 5% ON DAY 1 AND DAY 15 OF THERAPY)
     Route: 064
     Dates: start: 20171108
  2. PREDNISONE. [Suspect]
     Active Substance: PREDNISONE
     Indication: PRODUCT USED FOR UNKNOWN INDICATION
     Dosage: 80 MG PER DAY
     Route: 064
     Dates: start: 2017
  3. DACARBAZINE. [Suspect]
     Active Substance: DACARBAZINE
     Indication: HODGKIN^S DISEASE
     Dosage: 375 MG/M2 ( (IN 250 ML OF GLUCOSE 5% ON DAY1 AND DAY 15 OF THERAPY)
     Route: 064
     Dates: start: 20171108
  4. VALACICLOVIR [Suspect]
     Active Substance: VALACYCLOVIR HYDROCHLORIDE
     Indication: PRODUCT USED FOR UNKNOWN INDICATION
     Dosage: 500 MG, QD
     Route: 064
     Dates: start: 2017
  5. GLUCOSE 5% [Suspect]
     Active Substance: DEXTROSE
     Dosage: 20 ML (USED AS A VEHICLE FOR DOXORUBICIN DRUG ADMINISTRATION)
     Route: 064
     Dates: start: 20171108
  6. LANSOPRAZOLE. [Suspect]
     Active Substance: LANSOPRAZOLE
     Indication: PRODUCT USED FOR UNKNOWN INDICATION
     Dosage: 30 MG, QD
     Route: 064
     Dates: start: 2017
  7. BLEOMYCIN [Suspect]
     Active Substance: BLEOMYCIN SULFATE
     Indication: HODGKIN^S DISEASE
     Dosage: 10 MG/M2 (IN 20 ML NACL ON DAY 1 AND DAY 15 OF THERAPY)
     Route: 064
     Dates: start: 20171108
  8. AMOXICILLIN. [Suspect]
     Active Substance: AMOXICILLIN
     Indication: ANTIBIOTIC THERAPY
     Dosage: UNK
     Route: 064
  9. VINBLASTINE [Suspect]
     Active Substance: VINBLASTINE
     Indication: HODGKIN^S DISEASE
     Dosage: 5 MG/M2 (IN 20 ML NACL ON DAY 1 AND DAY 15 OF THERAPY)
     Route: 064
     Dates: start: 20171108
  10. 0.9 % SODIUM CHLORIDE [Suspect]
     Active Substance: SODIUM CHLORIDE
     Indication: HODGKIN^S DISEASE
     Dosage: 20 ML (USED AS A VEHICLE FOR VINBLASTIN DRUG ADMINISTRATION)
     Route: 064
     Dates: start: 20171108
  11. ENOXAPARIN [Suspect]
     Active Substance: ENOXAPARIN
     Indication: PRODUCT USED FOR UNKNOWN INDICATION
     Dosage: 4000 UI, BID
     Route: 064
     Dates: start: 2017
  12. DEXAMETHASONE. [Suspect]
     Active Substance: DEXAMETHASONE
     Indication: HODGKIN^S DISEASE
     Dosage: 10 MG (ON DAY1 AND DAY 15 OF THERAPY)
     Route: 064
     Dates: start: 20171108
  13. GLUCOSE 5% [Suspect]
     Active Substance: DEXTROSE
     Indication: HODGKIN^S DISEASE
     Dosage: 250 ML (USED AS A VEHICLE FOR DACARBAZINE DRUG ADMINISTRATION)
     Route: 064
     Dates: start: 20171108
  14. ONDANSETRON [Suspect]
     Active Substance: ONDANSETRON
     Indication: PROPHYLAXIS OF NAUSEA AND VOMITING
     Dosage: 8 MG, BID
     Route: 064
     Dates: start: 2017, end: 201711
  15. PREDNISONE. [Suspect]
     Active Substance: PREDNISONE
     Dosage: 40 MG PER DAY
     Route: 064
     Dates: end: 201711
  16. 0.9 % SODIUM CHLORIDE [Suspect]
     Active Substance: SODIUM CHLORIDE
     Dosage: 20 ML (USED AS A VEHICLE FOR BLEOMYCIN DRUG ADMINISTRATION)
     Route: 064
     Dates: start: 20171108

REACTIONS (5)
  - Troponin increased [Unknown]
  - Premature baby [Unknown]
  - Cardiotoxicity [Recovered/Resolved]
  - Foetal exposure during pregnancy [Unknown]
  - Cardiac dysfunction [Recovered/Resolved]

NARRATIVE: CASE EVENT DATE: 2017
